FAERS Safety Report 4696472-8 (Version None)
Quarter: 2005Q2

REPORT INFORMATION
  Report Type: 
  Country: None (occurrence: None)
  Receive Date: 20050621
  Receipt Date: 20050524
  Transmission Date: 20051028
  Serious: Yes (Life-Threatening, Other)
  Sender: FDA-Public Use
  Company Number: JP-MERCK-0505USA03479

PATIENT
  Age: 68 Year
  Sex: Female

DRUGS (12)
  1. PEPCID RPD [Suspect]
     Indication: GASTRITIS
     Route: 048
     Dates: start: 20030613, end: 20030702
  2. LIPITOR [Suspect]
     Indication: HYPERLIPIDAEMIA
     Route: 048
     Dates: end: 20030701
  3. ZESTRIL [Suspect]
     Indication: HYPERTENSION
     Route: 048
     Dates: start: 20030130, end: 20030703
  4. ZYLORIC [Suspect]
     Indication: HYPERURICAEMIA
     Route: 048
     Dates: start: 20030624, end: 20030702
  5. PANSPORIN [Suspect]
     Indication: BACTERIAL INFECTION
     Route: 048
     Dates: start: 20030701, end: 20030701
  6. CEFZON [Suspect]
     Indication: BACTERIAL INFECTION
     Route: 048
     Dates: start: 20030701, end: 20030701
  7. ACETAMINOPHEN [Suspect]
     Indication: HEADACHE
     Route: 048
     Dates: start: 20030625, end: 20030701
  8. WARFARIN [Suspect]
     Indication: GLOMERULONEPHRITIS PROLIFERATIVE
     Route: 048
     Dates: start: 20030620, end: 20030623
  9. WARFARIN [Suspect]
     Route: 048
     Dates: start: 20030624, end: 20030702
  10. SELBEX [Concomitant]
     Indication: GASTRITIS
     Route: 065
     Dates: end: 20030528
  11. AMLODIN [Concomitant]
     Indication: HYPERTENSION
     Route: 048
     Dates: start: 20030529, end: 20030703
  12. LENDORM [Concomitant]
     Indication: INSOMNIA
     Route: 048
     Dates: start: 20030409, end: 20030704

REACTIONS (17)
  - ADHESION [None]
  - BLISTER [None]
  - CHILLS [None]
  - ERYTHEMA [None]
  - GASTRITIS [None]
  - GLOMERULONEPHRITIS PROLIFERATIVE [None]
  - GLOMERULOSCLEROSIS [None]
  - HAEMODIALYSIS [None]
  - LIVER DISORDER [None]
  - MUCOSAL ULCERATION [None]
  - PAIN OF SKIN [None]
  - PYREXIA [None]
  - RENAL DISORDER [None]
  - RENAL FAILURE ACUTE [None]
  - SHOCK [None]
  - THROMBOSIS [None]
  - TOXIC EPIDERMAL NECROLYSIS [None]
